FAERS Safety Report 18584140 (Version 3)
Quarter: 2022Q2

REPORT INFORMATION
  Report Type: Spontaneous
  Country: US (occurrence: US)
  Receive Date: 20201207
  Receipt Date: 20220414
  Transmission Date: 20220721
  Serious: Yes (Other)
  Sender: FDA-Public Use
  Company Number: US-GLAXOSMITHKLINE-US2020GSK240298

PATIENT
  Sex: Male

DRUGS (4)
  1. ZANTAC [Suspect]
     Active Substance: RANITIDINE HYDROCHLORIDE
     Indication: Dyspepsia
     Dosage: UNK
     Route: 065
     Dates: start: 2008
  2. ZANTAC [Suspect]
     Active Substance: RANITIDINE HYDROCHLORIDE
     Indication: Gastrooesophageal reflux disease
  3. ZANTAC [Suspect]
     Active Substance: RANITIDINE HYDROCHLORIDE
     Indication: Product used for unknown indication
     Dosage: UNK
     Route: 065
     Dates: start: 2004, end: 2018
  4. RANITIDINE [Suspect]
     Active Substance: RANITIDINE
     Indication: Product used for unknown indication
     Dosage: UNK
     Route: 065
     Dates: start: 2004, end: 2018

REACTIONS (18)
  - Lip and/or oral cavity cancer [Unknown]
  - Tongue neoplasm malignant stage unspecified [Unknown]
  - Squamous cell carcinoma of the tongue [Unknown]
  - Mass [Unknown]
  - Mucosal inflammation [Unknown]
  - Hypogeusia [Unknown]
  - Stomatitis [Unknown]
  - Dry mouth [Unknown]
  - Dysphagia [Unknown]
  - Tongue disorder [Unknown]
  - Hypoaesthesia oral [Unknown]
  - Tongue discomfort [Unknown]
  - Glossodynia [Unknown]
  - Oral mucosal erythema [Unknown]
  - Oral pain [Unknown]
  - Dysarthria [Unknown]
  - Tongue discolouration [Unknown]
  - Temporomandibular joint syndrome [Unknown]

NARRATIVE: CASE EVENT DATE: 20200101
